FAERS Safety Report 19664708 (Version 1)
Quarter: 2021Q3

REPORT INFORMATION
  Report Type: Spontaneous
  Country: FR (occurrence: FR)
  Receive Date: 20210806
  Receipt Date: 20210806
  Transmission Date: 20211014
  Serious: Yes (Hospitalization, Other)
  Sender: FDA-Public Use
  Company Number: FR-AUROBINDO-AUR-APL-2021-033474

PATIENT
  Age: 69 Year
  Sex: Female
  Weight: 123 kg

DRUGS (11)
  1. HYDROCHLOROTHIAZIDE. [Suspect]
     Active Substance: HYDROCHLOROTHIAZIDE
     Indication: HYPERTENSION
     Dosage: 12.5 DOSAGE FORM, ONCE A DAY
     Route: 048
     Dates: end: 20210623
  2. LERCANIDIPINE [Suspect]
     Active Substance: LERCANIDIPINE
     Indication: HYPERTENSION
     Dosage: 20 DOSAGE FORM, ONCE A DAY
     Route: 048
     Dates: end: 20210623
  3. SULFARLEM S [Suspect]
     Active Substance: ANETHOLTRITHION
     Indication: SJOGREN^S SYNDROME
     Dosage: 2 DOSAGE FORM, ONCE A DAY
     Route: 048
     Dates: end: 20210623
  4. ULTRAVIST [Suspect]
     Active Substance: IOPROMIDE
     Indication: COMPUTERISED TOMOGRAM
     Dosage: 150 MILLILITER (1 TOTAL)
     Route: 042
     Dates: start: 20210621, end: 20210621
  5. TRIMETHYLPHLOROGLUCINOL [Suspect]
     Active Substance: 1,3,5-TRIMETHOXYBENZENE
     Indication: PRODUCT USED FOR UNKNOWN INDICATION
     Dosage: 80 DOSAGE FORM, ONCE A DAY
     Route: 048
     Dates: end: 20210623
  6. PRAVASTATIN SODIUM. [Suspect]
     Active Substance: PRAVASTATIN SODIUM
     Indication: PRODUCT USED FOR UNKNOWN INDICATION
     Dosage: 20 DOSAGE FORM, ONCE A DAY
     Route: 048
     Dates: end: 20210623
  7. PRAZEPAM [Suspect]
     Active Substance: PRAZEPAM
     Indication: MIXED ANXIETY AND DEPRESSIVE DISORDER
     Dosage: 10 DOSAGE FORM, ONCE A DAY
     Route: 048
     Dates: end: 20210623
  8. LEVOTHYROX [Concomitant]
     Active Substance: LEVOTHYROXINE
     Indication: PRODUCT USED FOR UNKNOWN INDICATION
     Dosage: UNK
     Route: 065
  9. CANDESARTAN. [Suspect]
     Active Substance: CANDESARTAN
     Indication: HYPERTENSION
     Dosage: 16 DOSAGE FORM, ONCE A DAY
     Route: 048
     Dates: end: 20210623
  10. CYAMEMAZINE [Suspect]
     Active Substance: CYAMEMAZINE
     Indication: MIXED ANXIETY AND DEPRESSIVE DISORDER
     Dosage: 25 DOSAGE FORM, ONCE A DAY
     Route: 048
     Dates: end: 20210623
  11. VENLAFAXINE [Concomitant]
     Active Substance: VENLAFAXINE HYDROCHLORIDE
     Indication: PRODUCT USED FOR UNKNOWN INDICATION
     Dosage: UNK
     Route: 065

REACTIONS (1)
  - Acute kidney injury [Recovered/Resolved]

NARRATIVE: CASE EVENT DATE: 20210623
